FAERS Safety Report 12410786 (Version 1)
Quarter: 2016Q2

REPORT INFORMATION
  Report Type: Spontaneous
  Country: FR (occurrence: FR)
  Receive Date: 20160527
  Receipt Date: 20160527
  Transmission Date: 20160815
  Serious: Yes (Hospitalization)
  Sender: FDA-Public Use
  Company Number: FR-009507513-1605FRA012997

PATIENT
  Age: 74 Year
  Sex: Male

DRUGS (1)
  1. FOSAMAX [Suspect]
     Active Substance: ALENDRONATE SODIUM
     Dosage: UNK
     Route: 048
     Dates: start: 2006, end: 20160402

REACTIONS (2)
  - Bone pain [Not Recovered/Not Resolved]
  - Osteitis condensans [Not Recovered/Not Resolved]

NARRATIVE: CASE EVENT DATE: 201109
